FAERS Safety Report 7240267-8 (Version None)
Quarter: 2011Q1

REPORT INFORMATION
  Report Type: 
  Country: None (occurrence: None)
  Receive Date: 20110113
  Receipt Date: 20110104
  Transmission Date: 20110831
  Serious: Yes (Disabling)
  Sender: FDA-Public Use
  Company Number: GB-1184553

PATIENT
  Sex: Female

DRUGS (2)
  1. TRAVATAN [Suspect]
     Dosage: OPHTHALMIC
     Route: 047
  2. AZOPT [Suspect]
     Dosage: OPHTHALMIC
     Route: 047

REACTIONS (1)
  - DEAFNESS [None]
